FAERS Safety Report 9709034 (Version 1)
Quarter: 2013Q4

REPORT INFORMATION
  Report Type: Spontaneous
  Country: DE (occurrence: None)
  Receive Date: 20131122
  Receipt Date: 20131122
  Transmission Date: 20140711
  Serious: Yes (Other)
  Sender: FDA-Public Use
  Company Number: DSM-2013-01092

PATIENT
  Age: 78 Year
  Sex: Male
  Weight: 75 kg

DRUGS (2)
  1. VOTUM [Suspect]
     Indication: HYPERTENSION
     Route: 048
     Dates: start: 20131011, end: 2013
  2. TERBINAFINE (TERBINAFINE) [Suspect]
     Indication: FUNGAL INFECTION
     Dosage: 250 MG (250 MG, 1 IN 1 D), ORAL
     Route: 048
     Dates: start: 201307

REACTIONS (2)
  - Phlebitis [None]
  - Thrombosis [None]
